FAERS Safety Report 14211764 (Version 1)
Quarter: 2017Q4

REPORT INFORMATION
  Report Type: Spontaneous
  Country: US (occurrence: US)
  Receive Date: 20171121
  Receipt Date: 20171121
  Transmission Date: 20180321
  Serious: Yes (Hospitalization, Disabling, Other)
  Sender: FDA-Public Use
  Company Number: None

PATIENT
  Age: 35 Year
  Sex: Male
  Weight: 103.5 kg

DRUGS (4)
  1. GLIMIPRIDE [Concomitant]
     Active Substance: GLIMEPIRIDE
  2. JANUMET [Concomitant]
     Active Substance: METFORMIN HYDROCHLORIDE\SITAGLIPTIN PHOSPHATE
  3. VITAMIN D3 [Concomitant]
     Active Substance: CHOLECALCIFEROL
  4. BYDUREON [Suspect]
     Active Substance: EXENATIDE
     Indication: DIABETES MELLITUS
     Dosage: ?          QUANTITY:1 INJECTION(S);OTHER FREQUENCY:1 A WEEK;?
     Route: 058
     Dates: start: 20171009, end: 20171016

REACTIONS (5)
  - Liver injury [None]
  - Impaired work ability [None]
  - Abdominal discomfort [None]
  - Jaundice [None]
  - Vomiting [None]

NARRATIVE: CASE EVENT DATE: 20171010
